FAERS Safety Report 9380062 (Version 1)
Quarter: 2013Q3

REPORT INFORMATION
  Report Type: Spontaneous
  Country: GB (occurrence: GB)
  Receive Date: 20130702
  Receipt Date: 20130702
  Transmission Date: 20140515
  Serious: Yes (Other)
  Sender: FDA-Public Use
  Company Number: GB-TEVA-385560ISR

PATIENT
  Sex: Female

DRUGS (1)
  1. LAMOTRIGINE [Suspect]
     Indication: PRODUCT USED FOR UNKNOWN INDICATION
     Route: 065

REACTIONS (7)
  - Vision blurred [Unknown]
  - Fall [Unknown]
  - Joint injury [Unknown]
  - Drug dispensing error [Unknown]
  - Medication error [Unknown]
  - Overdose [Unknown]
  - Product quality issue [Unknown]
